FAERS Safety Report 8600977-4 (Version None)
Quarter: 2012Q3

REPORT INFORMATION
  Report Type: 
  Country: None (occurrence: None)
  Receive Date: 20120803
  Receipt Date: 20120717
  Transmission Date: 20120928
  Serious: Yes (Hospitalization, Other)
  Sender: FDA-Public Use
  Company Number: ADR-2012-01404

PATIENT
  Age: 57 Year
  Sex: Male
  Weight: 82 kg

DRUGS (1)
  1. LIORESAL [Suspect]
     Dosage: 340 MCG/DAY

REACTIONS (4)
  - URINARY TRACT INFECTION [None]
  - MEDICAL DEVICE COMPLICATION [None]
  - PSYCHOTIC DISORDER [None]
  - DEVICE LEAKAGE [None]
